FAERS Safety Report 6336479-8 (Version None)
Quarter: 2009Q3

REPORT INFORMATION
  Report Type: 
  Country: None (occurrence: None)
  Receive Date: 20090901
  Receipt Date: 20090827
  Transmission Date: 20100115
  Serious: Yes (Hospitalization)
  Sender: FDA-Public Use
  Company Number: A0805203A

PATIENT
  Sex: Female

DRUGS (2)
  1. AUGMENTIN [Suspect]
     Indication: DRUG USE FOR UNKNOWN INDICATION
     Dosage: 5250MG TWICE PER DAY
     Route: 065
  2. OTHER MEDICATIONS [Concomitant]

REACTIONS (2)
  - ADVERSE EVENT [None]
  - OVERDOSE [None]
